FAERS Safety Report 10149867 (Version 1)
Quarter: 2014Q2

REPORT INFORMATION
  Report Type: Spontaneous
  Country: US (occurrence: None)
  Receive Date: 20140501
  Receipt Date: 20140501
  Transmission Date: 20141212
  Serious: Yes (Hospitalization)
  Sender: FDA-Public Use
  Company Number: None

PATIENT
  Age: 44 Year
  Sex: Female
  Weight: 77.11 kg

DRUGS (1)
  1. REMICADE [Suspect]
     Indication: PSORIATIC ARTHROPATHY
     Dosage: EVERY 3 WEEKS INTO A VEIN
     Dates: start: 20121206, end: 20131003

REACTIONS (6)
  - Dizziness [None]
  - Disorientation [None]
  - Dyspnoea [None]
  - Chest pain [None]
  - Pelvic pain [None]
  - Myocardial necrosis marker increased [None]
